FAERS Safety Report 16117818 (Version 1)
Quarter: 2019Q1

REPORT INFORMATION
  Report Type: Report from Study
  Country: ES (occurrence: ES)
  Receive Date: 20190326
  Receipt Date: 20190326
  Transmission Date: 20190418
  Serious: Yes (Life-Threatening, Hospitalization)
  Sender: FDA-Public Use
  Company Number: ES-TEVA-2019-ES-1029090

PATIENT
  Age: 66 Year
  Sex: Female

DRUGS (6)
  1. CITALOPRAM [Suspect]
     Active Substance: CITALOPRAM HYDROBROMIDE
     Indication: DEPRESSION
     Dosage: 10 MILLIGRAM DAILY;
     Route: 048
     Dates: start: 20090821, end: 20181005
  2. EUTIROX 100 MICROGRAMS COMPRESSED, 100 TABLETS [Interacting]
     Active Substance: LEVOTHYROXINE SODIUM
     Indication: HYPOTHYROIDISM
     Dosage: 100 MILLIGRAM DAILY;
     Route: 048
     Dates: start: 20150317, end: 20181005
  3. SIMVASTATINA (1023A) [Concomitant]
     Active Substance: SIMVASTATIN
     Indication: DYSLIPIDAEMIA
     Dosage: 20 MILLIGRAM DAILY;
     Route: 048
     Dates: start: 20120912, end: 20181005
  4. ALDOCUMAR 1 MG TABLETS, 40 TABLETS [Interacting]
     Active Substance: WARFARIN SODIUM
     Indication: THROMBOSIS PROPHYLAXIS
     Route: 048
     Dates: start: 20180316, end: 20181005
  5. SEGURIL 40 MG COMPRESSED, 10 TABLETS [Concomitant]
     Indication: CARDIAC FAILURE
     Dosage: 40 MILLIGRAM DAILY;
     Route: 048
     Dates: start: 20180316, end: 20181005
  6. RAMIPRIL (2497A) [Concomitant]
     Active Substance: RAMIPRIL
     Indication: HYPERTENSION
     Route: 048
     Dates: start: 20180316, end: 20181005

REACTIONS (2)
  - Drug interaction [Unknown]
  - Cerebral haemorrhage [Recovered/Resolved]

NARRATIVE: CASE EVENT DATE: 20181003
